FAERS Safety Report 4850875-7 (Version None)
Quarter: 2005Q4

REPORT INFORMATION
  Report Type: 
  Country: None (occurrence: None)
  Receive Date: 20051208
  Receipt Date: 20051123
  Transmission Date: 20060501
  Serious: Yes (Life-Threatening)
  Sender: FDA-Public Use
  Company Number: S05-ITA-05550-01

PATIENT
  Age: 89 Year
  Sex: Female

DRUGS (2)
  1. ELOPRAM (CITALOPRAM ) [Suspect]
     Indication: DEPRESSION
     Dosage: 4 DROPS QD PO
     Route: 048
     Dates: start: 20051031, end: 20051114
  2. TELMISARTAN [Concomitant]

REACTIONS (3)
  - BLOOD OSMOLARITY DECREASED [None]
  - HYPONATRAEMIA [None]
  - SOMNOLENCE [None]
